FAERS Safety Report 4570407-0 (Version None)
Quarter: 2005Q1

REPORT INFORMATION
  Report Type: 
  Country: None (occurrence: None)
  Receive Date: 20050204
  Receipt Date: 20040322
  Transmission Date: 20050727
  Serious: Yes (Other)
  Sender: FDA-Public Use
  Company Number: US-MERCK-0403USA02052M

PATIENT
  Age: 35 Year
  Sex: Female

DRUGS (8)
  1. SINGULAIR [Suspect]
     Indication: ASTHMA
     Route: 048
  2. SINGULAIR [Suspect]
     Indication: HYPERSENSITIVITY
     Route: 048
  3. FLONASE [Concomitant]
     Indication: ASTHMA
     Route: 065
  4. FLONASE [Concomitant]
     Indication: HYPERSENSITIVITY
     Route: 065
  5. SEREVENT [Concomitant]
     Indication: ASTHMA
     Route: 055
  6. SEREVENT [Concomitant]
     Indication: HYPERSENSITIVITY
     Route: 055
  7. VITAFOL CAPLETS [Concomitant]
     Route: 065
     Dates: start: 20030101
  8. ALBUTEROL [Concomitant]
     Route: 065

REACTIONS (6)
  - ABDOMINAL RIGIDITY [None]
  - DRUG EXPOSURE DURING PREGNANCY [None]
  - HERPES SIMPLEX [None]
  - NAUSEA [None]
  - UTERINE DISORDER [None]
  - VAGINAL PAIN [None]
